FAERS Safety Report 12191172 (Version 1)
Quarter: 2016Q1

REPORT INFORMATION
  Report Type: Spontaneous
  Country: US (occurrence: None)
  Receive Date: 20160317
  Receipt Date: 20160317
  Transmission Date: 20160526
  Serious: No
  Sender: FDA-Public Use
  Company Number: None

PATIENT
  Age: 53 Year
  Sex: Male

DRUGS (7)
  1. AMOXICILLIN. [Concomitant]
     Active Substance: AMOXICILLIN
  2. MULTI VITAMIN [Concomitant]
     Active Substance: VITAMINS
  3. HARVONI [Suspect]
     Active Substance: LEDIPASVIR\SOFOSBUVIR
     Indication: HEPATITIS C
     Dosage: 90-400MG QD ORAL
     Route: 048
     Dates: start: 20160109
  4. LISINOPRIL. [Concomitant]
     Active Substance: LISINOPRIL
  5. BIOTIN [Concomitant]
     Active Substance: BIOTIN
  6. FISH OIL [Concomitant]
     Active Substance: FISH OIL
  7. DEXAMETHASON [Concomitant]
     Active Substance: DEXAMETHASONE

REACTIONS (3)
  - Weight decreased [None]
  - Extra dose administered [None]
  - Decreased appetite [None]

NARRATIVE: CASE EVENT DATE: 20160110
